FAERS Safety Report 5031288-4 (Version None)
Quarter: 2006Q2

REPORT INFORMATION
  Report Type: 
  Country: None (occurrence: None)
  Receive Date: 20060621
  Receipt Date: 20060606
  Transmission Date: 20061013
  Serious: Yes (Hospitalization)
  Sender: FDA-Public Use
  Company Number: US-AVENTIS-200615136US

PATIENT
  Age: 56 Year
  Sex: Female
  Weight: 59 kg

DRUGS (1)
  1. KETEK [Suspect]
     Indication: UPPER RESPIRATORY TRACT INFECTION
     Route: 048
     Dates: start: 20051201, end: 20051205

REACTIONS (5)
  - ABDOMINAL PAIN [None]
  - ALANINE AMINOTRANSFERASE INCREASED [None]
  - ASPARTATE AMINOTRANSFERASE INCREASED [None]
  - EOSINOPHIL COUNT INCREASED [None]
  - HEPATOTOXICITY [None]
